FAERS Safety Report 5312619-4 (Version None)
Quarter: 2007Q2

REPORT INFORMATION
  Report Type: 
  Country: None (occurrence: None)
  Receive Date: 20070430
  Receipt Date: 20070423
  Transmission Date: 20071010
  Serious: Yes (Hospitalization)
  Sender: FDA-Public Use
  Company Number: DE-BRISTOL-MYERS SQUIBB COMPANY-13763321

PATIENT
  Age: 66 Year
  Sex: Female

DRUGS (4)
  1. ENDOXAN [Suspect]
     Indication: NEOPLASM MALIGNANT
     Route: 042
     Dates: start: 20061206, end: 20061206
  2. DOXORUBICIN HCL [Suspect]
     Indication: NEOPLASM MALIGNANT
     Route: 042
     Dates: start: 20061206, end: 20061206
  3. NEULASTA [Suspect]
     Route: 042
     Dates: start: 20061207, end: 20061207
  4. DOCETAXEL [Suspect]
     Indication: NEOPLASM MALIGNANT
     Route: 042
     Dates: start: 20061206, end: 20061206

REACTIONS (6)
  - ASTHENIA [None]
  - DYSPNOEA [None]
  - NAUSEA [None]
  - ORAL INTAKE REDUCED [None]
  - PULMONARY EMBOLISM [None]
  - WEIGHT DECREASED [None]
